FAERS Safety Report 9140953 (Version 1)
Quarter: 2013Q1

REPORT INFORMATION
  Report Type: Spontaneous
  Country: US (occurrence: US)
  Receive Date: 20130305
  Receipt Date: 20130305
  Transmission Date: 20140127
  Serious: Yes (Other)
  Sender: FDA-Public Use
  Company Number: US-PFIZER INC-2013074666

PATIENT
  Sex: Female

DRUGS (2)
  1. EFFEXOR XR [Suspect]
     Dosage: UNK
  2. EFFEXOR [Suspect]
     Dosage: UNK

REACTIONS (17)
  - Cardiac disorder [Unknown]
  - Aneurysm [Unknown]
  - Depression [Unknown]
  - Feeling abnormal [Unknown]
  - Mood swings [Unknown]
  - Nightmare [Unknown]
  - Malaise [Unknown]
  - Cough [Unknown]
  - Dyspnoea [Unknown]
  - Headache [Unknown]
  - Sexual dysfunction [Unknown]
  - Blood cholesterol increased [Unknown]
  - Hypertension [Unknown]
  - Muscular weakness [Unknown]
  - Agitation [Unknown]
  - Dermatillomania [Unknown]
  - Restlessness [Unknown]
